FAERS Safety Report 6113674-4 (Version None)
Quarter: 2009Q1

REPORT INFORMATION
  Report Type: 
  Country: None (occurrence: None)
  Receive Date: 20090312
  Receipt Date: 20090304
  Transmission Date: 20090719
  Serious: Yes (Other)
  Sender: FDA-Public Use
  Company Number: PHHY2008JP33254

PATIENT
  Age: 38 Year
  Sex: Female

DRUGS (6)
  1. NEORAL [Suspect]
     Indication: PSORIASIS
     Dosage: 200 MG/DAY
     Route: 048
  2. NEORAL [Suspect]
     Indication: NEPHROTIC SYNDROME
  3. FANSIDAR [Suspect]
     Dosage: 100 MG
     Route: 048
  4. GASTER [Suspect]
     Dosage: 20 MG/DAY
     Route: 048
  5. FOSAMAX [Suspect]
     Dosage: 35 MG/WEEK
     Route: 048
  6. ZYLORIC [Concomitant]
     Dosage: 100 MG
     Route: 048

REACTIONS (2)
  - APLASTIC ANAEMIA [None]
  - HAEMOLYTIC ANAEMIA [None]
